FAERS Safety Report 24561586 (Version 1)
Quarter: 2024Q4

REPORT INFORMATION
  Report Type: Report from Study
  Country: IT (occurrence: IT)
  Receive Date: 20241029
  Receipt Date: 20241029
  Transmission Date: 20250115
  Serious: Yes (Other)
  Sender: MYLAN
  Company Number: None

PATIENT
  Age: 44 Year
  Sex: Male

DRUGS (3)
  1. FEVARIN [Suspect]
     Active Substance: FLUVOXAMINE MALEATE
     Indication: Product used for unknown indication
     Dosage: 300 MILLIGRAM, 1 TOTAL (ASSUMES 3 TABLETS OF FEVARIN)
     Route: 048
     Dates: start: 20240822, end: 20240822
  2. XANAX [Suspect]
     Active Substance: ALPRAZOLAM
     Indication: Product used for unknown indication
     Dosage: 3 MILLIGRAM, 1 TOTAL (ASSUMES 3 TABLETS OF XANAX)
     Route: 048
     Dates: start: 20240822, end: 20240822
  3. VALPROATE SODIUM [Suspect]
     Active Substance: VALPROATE SODIUM
     Indication: Product used for unknown indication
     Dosage: 600 MILLIGRAM, 1 TOTAL (ASSUMES 3 TABLETS OF DEPAKIN)
     Route: 048
     Dates: start: 20240822, end: 20240822

REACTIONS (4)
  - Poisoning [Recovered/Resolved]
  - Feeling jittery [Recovered/Resolved]
  - Drug abuse [Recovered/Resolved]
  - Intentional self-injury [Unknown]

NARRATIVE: CASE EVENT DATE: 20240822
